FAERS Safety Report 4355685-5 (Version None)
Quarter: 2004Q2

REPORT INFORMATION
  Report Type: 
  Country: None (occurrence: None)
  Receive Date: 20040510
  Receipt Date: 20040427
  Transmission Date: 20050107
  Serious: Yes (Hospitalization)
  Sender: FDA-Public Use
  Company Number: ES-AMGEN-00010625

PATIENT
  Sex: Female
  Weight: 88.5 kg

DRUGS (9)
  1. ETANERCEPT [Suspect]
     Indication: RHEUMATOID ARTHRITIS
     Route: 058
     Dates: start: 19980716, end: 19991220
  2. ETANERCEPT [Suspect]
  3. INDOMETHACIN [Concomitant]
     Dates: start: 19950525
  4. DEFLAZACORT [Concomitant]
     Dates: start: 19990525
  5. RANITIDINE [Concomitant]
     Dates: start: 19970605
  6. CALCIUM [Concomitant]
     Dates: start: 19990507
  7. VITAMIN D [Concomitant]
     Dates: start: 19990507
  8. HYDROCHLOROTHIAZIDE [Concomitant]
     Dates: start: 19990525
  9. AMILORIDE [Concomitant]
     Dates: start: 19990525

REACTIONS (2)
  - UTERINE POLYPECTOMY [None]
  - VAGINAL HAEMORRHAGE [None]
